FAERS Safety Report 8529649-1 (Version None)
Quarter: 2012Q2

REPORT INFORMATION
  Report Type: 
  Country: None (occurrence: None)
  Receive Date: 20120410
  Receipt Date: 20120201
  Transmission Date: 20120825
  Serious: Yes (Other)
  Sender: FDA-Public Use
  Company Number: 2012-00119

PATIENT
  Age: 52 Year
  Sex: Male
  Weight: 107.5025 kg

DRUGS (3)
  1. LACOSAMIDE (VIMPAT) (TABLETS) [Concomitant]
  2. LEVETIRACETAM [Suspect]
     Indication: EPILEPSY
     Dosage: 2000 MG (1000 MG, 2 IN 1 D), PER ORAL
     Route: 048
     Dates: start: 20040101
  3. ZONISAMIDE [Concomitant]

REACTIONS (1)
  - GRAND MAL CONVULSION [None]
